FAERS Safety Report 17955690 (Version 1)
Quarter: 2020Q2

REPORT INFORMATION
  Report Type: Spontaneous
  Country: US (occurrence: US)
  Receive Date: 20200626
  Receipt Date: 20200626
  Transmission Date: 20200714
  Serious: Yes (Disabling)
  Sender: FDA-Public Use
  Company Number: None

PATIENT
  Age: 33 Year
  Sex: Female
  Weight: 70.65 kg

DRUGS (6)
  1. RNS, DBS, AND VNS DEVICES LAMICTAL [Concomitant]
  2. VITAMIN D [Concomitant]
     Active Substance: VITAMIN D NOS
  3. MELATONIN [Concomitant]
     Active Substance: MELATONIN
  4. FOLIC ACID. [Suspect]
     Active Substance: FOLIC ACID
  5. CLOBAZAM. [Concomitant]
     Active Substance: CLOBAZAM
  6. VIMPAT [Suspect]
     Active Substance: LACOSAMIDE
     Indication: EPILEPSY
     Dosage: ?          QUANTITY:2 DF DOSAGE FORM;?
     Route: 048
     Dates: start: 20200215, end: 20200222

REACTIONS (6)
  - Dizziness [None]
  - Nausea [None]
  - Headache [None]
  - Feeling abnormal [None]
  - Vomiting [None]
  - Visual impairment [None]

NARRATIVE: CASE EVENT DATE: 20200222
